FAERS Safety Report 17571167 (Version 2)
Quarter: 2020Q1

REPORT INFORMATION
  Report Type: Spontaneous
  Country: FR (occurrence: FR)
  Receive Date: 20200323
  Receipt Date: 20200324
  Transmission Date: 20200409
  Serious: Yes (Death, Other)
  Sender: FDA-Public Use
  Company Number: FR-PFIZER INC-2020120989

PATIENT
  Age: 77 Year
  Sex: Male
  Weight: 71 kg

DRUGS (11)
  1. OXYCONTIN [Suspect]
     Active Substance: OXYCODONE HYDROCHLORIDE
     Indication: PAIN
     Dosage: UNK
     Route: 048
     Dates: end: 20200222
  2. SERESTA [Suspect]
     Active Substance: OXAZEPAM
     Indication: DEPRESSION
     Dosage: UNK
     Route: 048
     Dates: end: 20200222
  3. EUPANTOL [Suspect]
     Active Substance: PANTOPRAZOLE SODIUM
     Indication: GASTROOESOPHAGEAL REFLUX DISEASE
     Dosage: UNK
     Route: 048
     Dates: end: 20200222
  4. THERALENE [Suspect]
     Active Substance: TRIMEPRAZINE
     Dosage: UNK
     Route: 048
     Dates: end: 20200219
  5. AMLODIPINE BESILATE [Suspect]
     Active Substance: AMLODIPINE BESYLATE
     Indication: HYPERTENSION
     Dosage: UNK
     Route: 048
     Dates: end: 20200222
  6. PARACETAMOL [Suspect]
     Active Substance: ACETAMINOPHEN
     Indication: PAIN
     Dosage: UNK
     Route: 048
     Dates: start: 20200208, end: 20200219
  7. ASCORBIC ACID;MACROGOL 4000;POTASSIUM CHLORIDE;SODIUM ASCORBATE;SODIUM CHLORIDE;SODIUM SULFATE ANHYDROUS [Suspect]
     Active Substance: ASCORBIC ACID\POLYETHYLENE GLYCOL 4000\POTASSIUM CL\SOD ASCORBATE\SOD CL\SOD SULFATE
     Indication: CONSTIPATION
     Dosage: UNK
     Route: 048
     Dates: start: 20200208, end: 20200222
  8. OXYNORMORO [Suspect]
     Active Substance: OXYCODONE HYDROCHLORIDE
     Indication: PAIN
     Dosage: UNK
     Route: 048
     Dates: end: 20200222
  9. SPASFON [PHLOROGLUCINOL;TRIMETHYLPHLOROGLUCINOL] [Suspect]
     Active Substance: PHLOROGLUCINOL\1,3,5-TRIMETHOXYBENZENE
     Indication: NAUSEA
     Dosage: UNK
     Route: 048
     Dates: start: 20200208, end: 20200219
  10. CLAMOXYL [AMOXICILLIN TRIHYDRATE] [Suspect]
     Active Substance: AMOXICILLIN
     Indication: BACTERAEMIA
     Dosage: UNK
     Route: 048
     Dates: start: 20200214, end: 20200219
  11. CLOXACILLINE [CLOXACILLIN] [Suspect]
     Active Substance: CLOXACILLIN
     Indication: BACTERAEMIA
     Dosage: 3 G, 1X/DAY (QD)
     Route: 048
     Dates: start: 20200211, end: 20200222

REACTIONS (3)
  - Anuria [Fatal]
  - Acute kidney injury [Fatal]
  - Encephalopathy [Fatal]

NARRATIVE: CASE EVENT DATE: 20200217
